FAERS Safety Report 8502258 (Version 4)
Quarter: 2013Q2

REPORT INFORMATION
  Report Type: Spontaneous
  Country: US (occurrence: US)
  Receive Date: 20120410
  Receipt Date: 20130508
  Transmission Date: 20140414
  Serious: Yes (Hospitalization, Other)
  Sender: FDA-Public Use
  Company Number: US-009507513-1204USA01001

PATIENT
  Sex: Female

DRUGS (3)
  1. FOSAMAX [Suspect]
     Indication: OSTEOPENIA
     Dosage: 70 MG, QW
     Route: 048
     Dates: start: 20000101, end: 20100402
  2. FOSAMAX [Suspect]
     Indication: OSTEOPOROSIS
  3. CALCIUM (UNSPECIFIED) [Concomitant]
     Dosage: 1000 MG, QD
     Dates: start: 2007

REACTIONS (14)
  - Femur fracture [Unknown]
  - Fall [Unknown]
  - Malnutrition [Unknown]
  - Iron deficiency anaemia [Unknown]
  - Open reduction of fracture [Unknown]
  - Ankle operation [Unknown]
  - Fracture [Unknown]
  - Low turnover osteopathy [Unknown]
  - Ankle fracture [Unknown]
  - Hepatic enzyme increased [Unknown]
  - Fall [Unknown]
  - Spinal compression fracture [Unknown]
  - Fibula fracture [Unknown]
  - Stress fracture [Recovering/Resolving]
